FAERS Safety Report 9400461 (Version 1)
Quarter: 2013Q3

REPORT INFORMATION
  Report Type: Spontaneous
  Country: US (occurrence: US)
  Receive Date: 20130715
  Receipt Date: 20130715
  Transmission Date: 20140515
  Serious: Yes (Death)
  Sender: FDA-Public Use
  Company Number: US-JNJFOC-20130702364

PATIENT
  Sex: Male

DRUGS (1)
  1. INVEGA [Suspect]
     Indication: MENTAL DISORDER
     Route: 048

REACTIONS (4)
  - Completed suicide [Fatal]
  - Intentional overdose [Fatal]
  - Off label use [Unknown]
  - Disturbance in social behaviour [Unknown]
